FAERS Safety Report 17706817 (Version 3)
Quarter: 2020Q4

REPORT INFORMATION
  Report Type: Spontaneous
  Country: US (occurrence: US)
  Receive Date: 20200424
  Receipt Date: 20201207
  Transmission Date: 20210113
  Serious: No
  Sender: FDA-Public Use
  Company Number: US-PFIZER INC-2020163402

PATIENT
  Age: 47 Year
  Sex: Female

DRUGS (2)
  1. SAVELLA [Concomitant]
     Active Substance: MILNACIPRAN HYDROCHLORIDE
     Dosage: UNK
  2. XELJANZ XR [Suspect]
     Active Substance: TOFACITINIB CITRATE
     Indication: RHEUMATOID ARTHRITIS
     Dosage: 11 MG, DAILY
     Route: 048
     Dates: start: 20190814

REACTIONS (11)
  - Drug ineffective [Unknown]
  - Discomfort [Unknown]
  - Depressed mood [Unknown]
  - Pain [Unknown]
  - Blood cholesterol increased [Unknown]
  - Fatigue [Unknown]
  - Product dose omission issue [Unknown]
  - Tremor [Unknown]
  - Blood pressure increased [Unknown]
  - Joint swelling [Unknown]
  - Sensitivity to weather change [Unknown]
